FAERS Safety Report 12872574 (Version 3)
Quarter: 2017Q1

REPORT INFORMATION
  Report Type: Report from Study
  Country: EC (occurrence: EC)
  Receive Date: 20161021
  Receipt Date: 20170310
  Transmission Date: 20170428
  Serious: Yes (Death, Hospitalization)
  Sender: FDA-Public Use
  Company Number: EC-ROCHE-1844655

PATIENT
  Age: 62 Year
  Sex: Female

DRUGS (1)
  1. MABTHERA [Suspect]
     Active Substance: RITUXIMAB
     Indication: PRODUCT USED FOR UNKNOWN INDICATION
     Route: 042
     Dates: start: 201512, end: 201611

REACTIONS (7)
  - Drug ineffective [Fatal]
  - Urethral stenosis [Recovering/Resolving]
  - Brain neoplasm [Fatal]
  - Dysuria [Fatal]
  - Dehydration [Recovering/Resolving]
  - Speech disorder [Fatal]
  - Decreased immune responsiveness [Unknown]

NARRATIVE: CASE EVENT DATE: 201607
